FAERS Safety Report 7650194-X (Version None)
Quarter: 2011Q3

REPORT INFORMATION
  Report Type: 
  Country: None (occurrence: None)
  Receive Date: 20110802
  Receipt Date: 20110721
  Transmission Date: 20111222
  Serious: Yes (Hospitalization, Other)
  Sender: FDA-Public Use
  Company Number: US-BAYER-2011-017235

PATIENT
  Age: 43 Year
  Sex: Female
  Weight: 69.388 kg

DRUGS (4)
  1. AMOXICILLIN AND CLAVULANATE POTASSIUM [Concomitant]
     Dosage: UNK
     Dates: start: 20101001
  2. RELPAX [Concomitant]
     Dosage: UNK
     Dates: start: 20100101
  3. IBUPROFEN [Concomitant]
     Dosage: UNK
     Dates: start: 20080101
  4. YAZ [Suspect]
     Indication: ACNE
     Dosage: UNK
     Route: 048
     Dates: start: 20081103, end: 20100101

REACTIONS (12)
  - BILIARY COLIC [None]
  - CHOLECYSTITIS [None]
  - CHOLELITHIASIS [None]
  - PAIN [None]
  - CHOLECYSTITIS CHRONIC [None]
  - MIGRAINE [None]
  - INJURY [None]
  - FATIGUE [None]
  - BLOOD CHOLESTEROL INCREASED [None]
  - RASH [None]
  - MUSCLE SPASMS [None]
  - BILE DUCT STONE [None]
